FAERS Safety Report 16672841 (Version 1)
Quarter: 2019Q3

REPORT INFORMATION
  Report Type: Spontaneous
  Country: US (occurrence: US)
  Receive Date: 20190620
  Receipt Date: 20190620
  Transmission Date: 20191004
  Serious: No
  Sender: FDA-Public Use
  Company Number: None

PATIENT
  Age: 85 Year
  Sex: Male
  Weight: 76.66 kg

DRUGS (10)
  1. LISINOPRIL. [Concomitant]
     Active Substance: LISINOPRIL
  2. NITROGLYCERIN. [Concomitant]
     Active Substance: NITROGLYCERIN
  3. ACYCLOVIR. [Concomitant]
     Active Substance: ACYCLOVIR
  4. POTASSIUM [Concomitant]
     Active Substance: POTASSIUM
  5. NADOLOL. [Concomitant]
     Active Substance: NADOLOL
  6. ASPIRIN. [Concomitant]
     Active Substance: ASPIRIN
  7. ROSUASTATIN [Concomitant]
  8. PREDNISONE. [Concomitant]
     Active Substance: PREDNISONE
  9. ZYTIGA [Suspect]
     Active Substance: ABIRATERONE ACETATE
     Indication: PROSTATE CANCER
     Route: 048
  10. RANITIDINE. [Concomitant]
     Active Substance: RANITIDINE

REACTIONS (2)
  - Adverse reaction [None]
  - Therapy change [None]
